FAERS Safety Report 7991677-2 (Version None)
Quarter: 2011Q4

REPORT INFORMATION
  Report Type: 
  Country: None (occurrence: None)
  Receive Date: 20111219
  Receipt Date: 20111206
  Transmission Date: 20120403
  Serious: Yes (Hospitalization, Other)
  Sender: FDA-Public Use
  Company Number: PHHY2011CA101442

PATIENT
  Sex: Female

DRUGS (7)
  1. VALPROIC ACID [Concomitant]
  2. DOCUSATE SODIUM [Concomitant]
     Dosage: 100 UKN, BID
  3. OLANZAPINE [Concomitant]
     Dosage: 10 MG, QHS
  4. LITHIUM CARBONATE [Concomitant]
     Dates: end: 20111110
  5. CLOZARIL [Suspect]
     Indication: BIPOLAR DISORDER
     Dosage: 200 MG ONCE DAILY
     Dates: start: 20110921, end: 20111110
  6. LEVOTHYROXINE SODIUM [Concomitant]
     Dosage: 0.15 UNK, UNK
  7. NICOTINE [Concomitant]
     Dosage: 21 DAILY

REACTIONS (23)
  - URINARY RETENTION [None]
  - CONVULSION [None]
  - BLOOD LACTIC ACID INCREASED [None]
  - ELECTROLYTE IMBALANCE [None]
  - HAEMOGLOBIN DECREASED [None]
  - URINARY TRACT INFECTION [None]
  - TOXICITY TO VARIOUS AGENTS [None]
  - VOMITING [None]
  - ALTERED STATE OF CONSCIOUSNESS [None]
  - DISORIENTATION [None]
  - DYSARTHRIA [None]
  - BLOOD CREATININE INCREASED [None]
  - RENAL FAILURE ACUTE [None]
  - PLEURAL EFFUSION [None]
  - ABDOMINAL DISTENSION [None]
  - WHITE BLOOD CELL COUNT INCREASED [None]
  - BLOOD SODIUM INCREASED [None]
  - CONFUSIONAL STATE [None]
  - BRONCHITIS [None]
  - HYPOTENSION [None]
  - PNEUMONIA [None]
  - SEDATION [None]
  - BLOOD BICARBONATE DECREASED [None]
